FAERS Safety Report 10923861 (Version 1)
Quarter: 2015Q1

REPORT INFORMATION
  Report Type: Not Available
  Country: ZA (occurrence: ZA)
  Receive Date: 20150318
  Receipt Date: 20150318
  Transmission Date: 20150721
  Serious: Yes (Hospitalization)
  Sender: FDA-Public Use
  Company Number: ZA-LUPIN PHARMACEUTICALS INC.-2015-00695

PATIENT
  Age: 67 Year
  Sex: Male
  Weight: 86 kg

DRUGS (8)
  1. LUNTUS INSULIN [Concomitant]
     Indication: DIABETES MELLITUS
     Dosage: 30 U
     Route: 058
     Dates: start: 2015
  2. CO-PRITOR [Concomitant]
     Indication: HYPERTENSION
     Dosage: 80/12.5 MG
     Route: 048
     Dates: start: 2010
  3. DISPRIN CARDIO [Concomitant]
     Indication: ANTICOAGULANT THERAPY
     Route: 048
     Dates: start: 2000, end: 20150128
  4. AMLOC [Suspect]
     Active Substance: AMLODIPINE BESYLATE
     Indication: HYPERTENSION
     Route: 048
     Dates: start: 2009, end: 20150128
  5. GALVUS [Concomitant]
     Active Substance: VILDAGLIPTIN
     Indication: DIABETES MELLITUS
     Route: 048
     Dates: start: 201308, end: 20150128
  6. PLENISH K [Concomitant]
     Indication: MINERAL SUPPLEMENTATION
     Route: 048
     Dates: start: 2010
  7. PURICOSE [Concomitant]
     Indication: GOUT
     Route: 048
     Dates: start: 2000
  8. TREPILLIN [Concomitant]
     Indication: DEPRESSION
     Route: 048
     Dates: start: 2010, end: 20150128

REACTIONS (4)
  - Cholecystitis [Not Recovered/Not Resolved]
  - Hypotension [Recovered/Resolved]
  - Blood glucose decreased [Recovered/Resolved]
  - Weight decreased [Not Recovered/Not Resolved]

NARRATIVE: CASE EVENT DATE: 20150127
